FAERS Safety Report 9269388 (Version 1)
Quarter: 2013Q2

REPORT INFORMATION
  Report Type: Spontaneous
  Country: CN (occurrence: CN)
  Receive Date: 20130503
  Receipt Date: 20130503
  Transmission Date: 20140414
  Serious: Yes (Life-Threatening)
  Sender: FDA-Public Use
  Company Number: CN-COVIDIEN/TYCO HEALTHCARE/MALLINCKRODT-T201301810

PATIENT
  Age: 43 Year
  Sex: Female
  Weight: 55 kg

DRUGS (1)
  1. OPTIRAY [Suspect]
     Indication: COMPUTERISED TOMOGRAM ABDOMEN
     Dosage: 100 ML, SINGLE, 4 ML/SEC
     Route: 042
     Dates: start: 20130405, end: 20130405

REACTIONS (1)
  - Hypersensitivity [Recovered/Resolved]
